FAERS Safety Report 8233116-2 (Version None)
Quarter: 2012Q1

REPORT INFORMATION
  Report Type: 
  Country: None (occurrence: None)
  Receive Date: 20120326
  Receipt Date: 20120315
  Transmission Date: 20120608
  Serious: No
  Sender: FDA-Public Use
  Company Number: US-BIOGENIDEC-2012BI009339

PATIENT
  Age: 44 Year
  Sex: Female

DRUGS (1)
  1. AVONEX [Suspect]
     Indication: MULTIPLE SCLEROSIS
     Route: 030
     Dates: start: 20010501

REACTIONS (5)
  - THYROID DISORDER [None]
  - DRUG SPECIFIC ANTIBODY PRESENT [None]
  - HYPOREFLEXIA [None]
  - FATIGUE [None]
  - DYSPHONIA [None]
